FAERS Safety Report 23398617 (Version 1)
Quarter: 2024Q1

REPORT INFORMATION
  Report Type: Spontaneous
  Country: CN (occurrence: CN)
  Receive Date: 20240112
  Receipt Date: 20240112
  Transmission Date: 20240410
  Serious: Yes (Life-Threatening, Other)
  Sender: FDA-Public Use
  Company Number: CN-009507513-2401CHN005250

PATIENT
  Age: 39 Year
  Sex: Female
  Weight: 50.5 kg

DRUGS (2)
  1. CILASTATIN SODIUM\IMIPENEM [Suspect]
     Active Substance: CILASTATIN SODIUM\IMIPENEM
     Indication: Infection
     Dosage: 500 MG, QID; RATE OF 40-60 DROPS/MIN
     Route: 041
     Dates: start: 20231212, end: 20231213
  2. SODIUM CHLORIDE [Concomitant]
     Active Substance: SODIUM CHLORIDE
     Indication: Medication dilution
     Dosage: 100 ML, QID; RATE OF 40-60 DROPS/MIN
     Route: 041
     Dates: start: 20231212, end: 20231213

REACTIONS (4)
  - Seizure [Recovering/Resolving]
  - Facial paralysis [Recovering/Resolving]
  - Loss of consciousness [Recovering/Resolving]
  - Pupillary reflex impaired [Unknown]

NARRATIVE: CASE EVENT DATE: 20231213
